FAERS Safety Report 6856552-5 (Version None)
Quarter: 2010Q3

REPORT INFORMATION
  Report Type: 
  Country: None (occurrence: None)
  Receive Date: 20100719
  Receipt Date: 20100709
  Transmission Date: 20110219
  Serious: Yes (Death, Hospitalization)
  Sender: FDA-Public Use
  Company Number: CO-ROCHE-714421

PATIENT
  Sex: Female

DRUGS (3)
  1. HERCEPTIN [Suspect]
     Indication: BREAST CANCER
     Dosage: FREQUENCY: Q7 DAYS, FORM: INFUSION, LAST INFUSION GIVEN ON 26 JANUARY 2010.
     Route: 042
     Dates: start: 20081016, end: 20100126
  2. TRAMADOL [Concomitant]
     Indication: PAIN
     Dosage: FREQUENCY: QD
     Route: 048
  3. ACETAMINOPHEN [Concomitant]
     Indication: PAIN
     Dosage: FRQUENCY: QD
     Route: 048

REACTIONS (1)
  - MALIGNANT NEOPLASM PROGRESSION [None]
